APPROVED DRUG PRODUCT: THALIDOMIDE
Active Ingredient: THALIDOMIDE
Strength: 150MG
Dosage Form/Route: CAPSULE;ORAL
Application: A213267 | Product #001
Applicant: NATCO PHARMA LTD
Approved: Apr 27, 2023 | RLD: No | RS: No | Type: DISCN